FAERS Safety Report 19953672 (Version 1)
Quarter: 2021Q4

REPORT INFORMATION
  Report Type: Spontaneous
  Country: US (occurrence: US)
  Receive Date: 20211011
  Receipt Date: 20211011
  Transmission Date: 20220303
  Serious: Yes (Other)
  Sender: FDA-Public Use
  Company Number: None

PATIENT
  Age: 60 Year
  Sex: Female
  Weight: 93.89 kg

DRUGS (1)
  1. EPCLUSA [Suspect]
     Active Substance: SOFOSBUVIR\VELPATASVIR
     Indication: Hepatitis C
     Dosage: ?          OTHER DOSE:400/100MG;
     Route: 048
     Dates: start: 20211006, end: 20211009

REACTIONS (8)
  - Hypersensitivity [None]
  - Abdominal pain upper [None]
  - Diarrhoea [None]
  - Chest pain [None]
  - Paraesthesia oral [None]
  - Faeces discoloured [None]
  - Ocular icterus [None]
  - Therapy cessation [None]

NARRATIVE: CASE EVENT DATE: 20211006
